FAERS Safety Report 14551314 (Version 1)
Quarter: 2018Q1

REPORT INFORMATION
  Report Type: Spontaneous
  Country: US (occurrence: US)
  Receive Date: 20180220
  Receipt Date: 20180220
  Transmission Date: 20180509
  Serious: Yes (Other)
  Sender: FDA-Public Use
  Company Number: US-ROCHE-2069830

PATIENT
  Sex: Female
  Weight: 74.46 kg

DRUGS (2)
  1. KADCYLA [Suspect]
     Active Substance: ADO-TRASTUZUMAB EMTANSINE
     Indication: BREAST CANCER METASTATIC
     Route: 065
  2. HERCEPTIN [Suspect]
     Active Substance: TRASTUZUMAB
     Indication: BREAST CANCER METASTATIC
     Route: 065

REACTIONS (7)
  - Bone cancer [Unknown]
  - Memory impairment [Unknown]
  - Fatigue [Unknown]
  - Lung carcinoma cell type unspecified recurrent [Unknown]
  - Dysphagia [Unknown]
  - Lymphoma [Unknown]
  - Epistaxis [Unknown]
